FAERS Safety Report 5937748-3 (Version None)
Quarter: 2008Q4

REPORT INFORMATION
  Report Type: 
  Country: None (occurrence: None)
  Receive Date: 20081031
  Receipt Date: 20081022
  Transmission Date: 20090506
  Serious: Yes (Hospitalization)
  Sender: FDA-Public Use
  Company Number: AT-GENENTECH-269961

PATIENT
  Sex: Male

DRUGS (3)
  1. BEVACIZUMAB [Suspect]
     Indication: COLON CANCER
     Dosage: 675 MG, Q3W
     Route: 042
     Dates: start: 20080108, end: 20080624
  2. CAPECITABINE [Suspect]
     Indication: COLON CANCER
     Dosage: 70000 MG, BID
     Route: 048
     Dates: start: 20080101
  3. CAPECITABINE [Suspect]
     Dosage: 712.5 MG, Q3W
     Dates: start: 20080311, end: 20080624

REACTIONS (2)
  - ARTHRITIS INFECTIVE [None]
  - SCIATICA [None]
